FAERS Safety Report 8426685-0 (Version None)
Quarter: 2012Q2

REPORT INFORMATION
  Report Type: 
  Country: None (occurrence: None)
  Receive Date: 20120611
  Receipt Date: 20120607
  Transmission Date: 20120825
  Serious: Yes (Other)
  Sender: FDA-Public Use
  Company Number: FR-PFIZER INC-2012069138

PATIENT
  Age: 65 Year
  Sex: Female
  Weight: 71 kg

DRUGS (6)
  1. REVATIO [Suspect]
     Indication: PULMONARY ARTERIAL HYPERTENSION
     Dosage: 20 MG, 3X/DAY
     Route: 048
     Dates: start: 20110806, end: 20111209
  2. TROLOVOL [Concomitant]
     Indication: SCLERODERMA
     Dosage: UNK
     Route: 048
     Dates: start: 19960101
  3. RAMIPRIL [Concomitant]
     Indication: SCLERODERMA
     Dosage: 2.5 MG, 1X/DAY
     Route: 048
     Dates: start: 20070101
  4. TRACLEER [Concomitant]
     Indication: PULMONARY ARTERIAL HYPERTENSION
     Dosage: UNK MG, UNK
     Route: 048
     Dates: start: 20111015
  5. PLAVIX [Concomitant]
     Dosage: UNK
     Route: 048
     Dates: start: 20050101
  6. TRACLEER [Concomitant]
     Indication: DIGITAL ULCER

REACTIONS (3)
  - ECZEMA [None]
  - TOXIC SKIN ERUPTION [None]
  - PRURITUS [None]
